FAERS Safety Report 8509669-3 (Version None)
Quarter: 2012Q2

REPORT INFORMATION
  Report Type: 
  Country: None (occurrence: None)
  Receive Date: 20120405
  Receipt Date: 20090505
  Transmission Date: 20120825
  Serious: Yes (Hospitalization)
  Sender: FDA-Public Use
  Company Number: PHEH2009US04427

PATIENT
  Age: 87 Year
  Sex: Female
  Weight: 58 kg

DRUGS (14)
  1. VITAMIN D [Concomitant]
  2. RECLAST [Suspect]
     Indication: OSTEOPOROSIS
     Dosage: 5 MG, ONCE, SINGLE, INFUSION
     Dates: start: 20090423
  3. BUFFERIN [Concomitant]
  4. BENAZEPRIL HYDROCHLORIDE [Concomitant]
  5. TOPROL-XL [Concomitant]
  6. CALCIUM CARBONATE [Concomitant]
  7. DIOVAN HCT [Concomitant]
  8. FUROSEMIDE (FUROSEMIDE) [Concomitant]
  9. ULTRAM [Concomitant]
  10. ASPIRIN [Concomitant]
  11. POTASSIUM CHLORIDE [Concomitant]
  12. ZOCOR [Concomitant]
  13. CARDIZEM [Concomitant]
  14. DIGOXIN (DIGOXIN)C [Concomitant]

REACTIONS (2)
  - NAUSEA [None]
  - VOMITING [None]
